FAERS Safety Report 9192493 (Version 1)
Quarter: 2013Q1

REPORT INFORMATION
  Report Type: Spontaneous
  Country: US (occurrence: None)
  Receive Date: 20130326
  Receipt Date: 20130326
  Transmission Date: 20140127
  Serious: Yes (Hospitalization)
  Sender: FDA-Public Use
  Company Number: None

PATIENT
  Age: 63 Year
  Sex: Male
  Weight: 144.4 kg

DRUGS (2)
  1. METOLAZONE [Suspect]
     Indication: CARDIAC FAILURE CONGESTIVE
     Route: 048
     Dates: start: 20130223, end: 20130227
  2. METOLAZONE [Suspect]
     Indication: HYPERTENSION
     Route: 048
     Dates: start: 20130223, end: 20130227

REACTIONS (10)
  - Dizziness [None]
  - Hypotension [None]
  - Renal injury [None]
  - Bradycardia [None]
  - Fluid overload [None]
  - Dehydration [None]
  - Cardiac failure [None]
  - Congestive cardiomyopathy [None]
  - Confusional state [None]
  - Syncope [None]
